FAERS Safety Report 7659716-6 (Version None)
Quarter: 2011Q3

REPORT INFORMATION
  Report Type: 
  Country: None (occurrence: None)
  Receive Date: 20110805
  Receipt Date: 20100812
  Transmission Date: 20111222
  Serious: Yes (Other)
  Sender: FDA-Public Use
  Company Number: US-ABBOTT-10P-163-0663782-00

PATIENT
  Sex: Female

DRUGS (3)
  1. DEPAKOTE ER [Suspect]
  2. VALPROIC ACID [Suspect]
  3. KEPPRA [Concomitant]

REACTIONS (2)
  - CONVULSION [None]
  - TREMOR [None]
